FAERS Safety Report 10460941 (Version 1)
Quarter: 2014Q3

REPORT INFORMATION
  Report Type: Spontaneous
  Country: US (occurrence: None)
  Receive Date: 20140917
  Receipt Date: 20140917
  Transmission Date: 20150326
  Serious: Yes (Other)
  Sender: FDA-Public Use
  Company Number: None

PATIENT
  Age: 42 Year
  Sex: Female
  Weight: 86.18 kg

DRUGS (1)
  1. EFFEXOR [Suspect]
     Active Substance: VENLAFAXINE HYDROCHLORIDE
     Dosage: 75MG/1 CAPSULE, ONCE DAILY, TAKEN BY MOUTH
     Route: 048

REACTIONS (4)
  - Gait disturbance [None]
  - Fatigue [None]
  - Palpitations [None]
  - Crying [None]

NARRATIVE: CASE EVENT DATE: 20080528
